FAERS Safety Report 9494464 (Version 2)
Quarter: 2013Q4

REPORT INFORMATION
  Report Type: Spontaneous
  Country: DK (occurrence: DK)
  Receive Date: 20130903
  Receipt Date: 20131021
  Transmission Date: 20140711
  Serious: Yes (Other)
  Sender: FDA-Public Use
  Company Number: DK-ASTELLAS-2013EU007276

PATIENT
  Sex: Male

DRUGS (7)
  1. TACROLIMUS SYSTEMIC [Suspect]
     Dosage: UNK
     Route: 048
     Dates: start: 20060113, end: 20130820
  2. PREDNISOLONE [Concomitant]
     Dosage: 5 MG, UID/QD
     Route: 065
  3. SELO-ZOK [Concomitant]
     Dosage: 50 MG, UID/QD
     Route: 065
  4. CELLCEPT                           /01275102/ [Concomitant]
     Dosage: 500 MG, BID
     Route: 065
  5. PANTOPRAZOLE [Concomitant]
     Dosage: 20 MG, QOD
     Route: 065
  6. NORSPAN                            /00444001/ [Concomitant]
     Dosage: UNK UMOL, UNK
     Route: 065
     Dates: start: 201206
  7. PARACETAMOL [Concomitant]
     Dosage: 1 G, TID
     Route: 065

REACTIONS (6)
  - Arthralgia [Not Recovered/Not Resolved]
  - Pain in extremity [Not Recovered/Not Resolved]
  - Back pain [Not Recovered/Not Resolved]
  - Peripheral sensorimotor neuropathy [Not Recovered/Not Resolved]
  - Paraesthesia [Not Recovered/Not Resolved]
  - Muscle contracture [Not Recovered/Not Resolved]
